FAERS Safety Report 20199289 (Version 1)
Quarter: 2021Q4

REPORT INFORMATION
  Report Type: Spontaneous
  Country: US (occurrence: None)
  Receive Date: 20211216
  Receipt Date: 20211216
  Transmission Date: 20220303
  Serious: Yes (Hospitalization)
  Sender: FDA-Public Use
  Company Number: None

PATIENT
  Age: 38 Year
  Sex: Male
  Weight: 86 kg

DRUGS (1)
  1. GADOBENATE DIMEGLUMINE [Suspect]
     Active Substance: GADOBENATE DIMEGLUMINE
     Indication: Surgery
     Dates: start: 20210912, end: 20210912

REACTIONS (7)
  - Headache [None]
  - Myalgia [None]
  - Anaphylactic reaction [None]
  - Tachypnoea [None]
  - Hypotension [None]
  - Tachycardia [None]
  - Flushing [None]

NARRATIVE: CASE EVENT DATE: 20210912
